FAERS Safety Report 7264054-X (Version None)
Quarter: 2011Q1

REPORT INFORMATION
  Report Type: 
  Country: None (occurrence: None)
  Receive Date: 20110130
  Receipt Date: 20101230
  Transmission Date: 20110831
  Serious: Yes (Hospitalization)
  Sender: FDA-Public Use
  Company Number: US-ABBOTT-10P-163-0694471-00

PATIENT
  Sex: Male
  Weight: 70.37 kg

DRUGS (7)
  1. HUMIRA [Suspect]
     Indication: CROHN'S DISEASE
     Route: 058
     Dates: start: 20080901
  2. LOPRESSOR [Concomitant]
     Indication: TACHYCARDIA
     Route: 048
  3. SINESTROID [Concomitant]
     Indication: PRODUCT USED FOR UNKNOWN INDICATION
  4. TERAZOSIN [Concomitant]
     Indication: PRODUCT USED FOR UNKNOWN INDICATION
     Route: 048
  5. NORTRIPTYLINE [Concomitant]
     Indication: PRODUCT USED FOR UNKNOWN INDICATION
     Dosage: AT BEDTIME
     Route: 048
  6. FINASTERIDE [Concomitant]
     Indication: PROSTATOMEGALY
     Route: 048
  7. VICODIN [Concomitant]
     Indication: CROHN'S DISEASE

REACTIONS (2)
  - HEADACHE [None]
  - RESPIRATORY TRACT INFECTION BACTERIAL [None]
